FAERS Safety Report 7941456-7 (Version None)
Quarter: 2011Q4

REPORT INFORMATION
  Report Type: 
  Country: None (occurrence: None)
  Receive Date: 20111128
  Receipt Date: 20111117
  Transmission Date: 20120403
  Serious: Yes (Other)
  Sender: FDA-Public Use
  Company Number: CA-BAYER-2011-111262

PATIENT
  Sex: Female

DRUGS (1)
  1. YASMIN [Suspect]
     Indication: MIGRAINE

REACTIONS (3)
  - CHOLECYSTECTOMY [None]
  - PANCREATITIS [None]
  - COLITIS ULCERATIVE [None]
